FAERS Safety Report 7723431-0 (Version None)
Quarter: 2011Q3

REPORT INFORMATION
  Report Type: 
  Country: None (occurrence: None)
  Receive Date: 20110901
  Receipt Date: 20110830
  Transmission Date: 20111222
  Serious: Yes (Other)
  Sender: FDA-Public Use
  Company Number: US-PFIZER INC-2011202222

PATIENT
  Age: 24 Year
  Sex: Female
  Weight: 88.4 kg

DRUGS (8)
  1. LYRICA [Suspect]
     Indication: INTERVERTEBRAL DISC PROTRUSION
     Dosage: 150 MG, 2X/DAY
  2. LYRICA [Suspect]
     Indication: NEUROPATHY PERIPHERAL
     Dosage: 50 MG, DAILY
     Dates: start: 20100101
  3. TRAMADOL [Concomitant]
     Dosage: 50 MG, TWO TO THREE TIMES A DAY
  4. LYRICA [Suspect]
     Dosage: UNK
     Route: 048
     Dates: start: 20100101
  5. CYCLOBENZAPRINE [Concomitant]
     Dosage: 10 MG, 2X/DAY
     Route: 048
  6. LYRICA [Suspect]
     Indication: ARTERIOSCLEROSIS
     Dosage: 75 MG, 2X/DAY
  7. LYRICA [Suspect]
     Indication: INTERVERTEBRAL DISC DISORDER
     Dosage: 250 MG, 2X/DAY
     Dates: start: 20110101
  8. ETODOLAC [Concomitant]
     Dosage: 300 MG, 2X/DAY
     Route: 048

REACTIONS (2)
  - WEIGHT INCREASED [None]
  - VISION BLURRED [None]
